FAERS Safety Report 21336147 (Version 1)
Quarter: 2022Q3

REPORT INFORMATION
  Report Type: Spontaneous
  Country: US (occurrence: None)
  Receive Date: 20220915
  Receipt Date: 20220915
  Transmission Date: 20221026
  Serious: No
  Sender: FDA-Public Use
  Company Number: US-Unichem Pharmaceuticals (USA) Inc-UCM202110-000960

PATIENT
  Sex: Female

DRUGS (2)
  1. CLONIDINE HYDROCHLORIDE [Suspect]
     Active Substance: CLONIDINE HYDROCHLORIDE
     Indication: Hypertension
  2. Moderna shot [Concomitant]
     Indication: COVID-19 immunisation
     Dosage: UNKNOWN

REACTIONS (2)
  - Headache [Unknown]
  - Drug ineffective [Unknown]
